FAERS Safety Report 21636700 (Version 1)
Quarter: 2022Q4

REPORT INFORMATION
  Report Type: Report from Study
  Country: US (occurrence: US)
  Receive Date: 20221124
  Receipt Date: 20221124
  Transmission Date: 20230112
  Serious: No
  Sender: FDA-Public Use
  Company Number: US-ABBVIE-22K-163-4396493-00

PATIENT
  Age: 72 Year
  Sex: Female

DRUGS (41)
  1. SKYRIZI [Suspect]
     Active Substance: RISANKIZUMAB-RZAA
     Indication: Psoriasis
     Dosage: 1 INJECTION SUBCUTANEOUSLY EVERY 12 WEEKS STARTING ON VVEEK 4
     Route: 058
     Dates: start: 20220203
  2. AMLODIPINE TAB 5MG [Concomitant]
     Indication: Product used for unknown indication
  3. VITAMIN B 12 LOZ 250MCG [Concomitant]
     Indication: Product used for unknown indication
  4. PRIMADOPHILU CAP [Concomitant]
     Indication: Product used for unknown indication
  5. CRESTOR [Concomitant]
     Active Substance: ROSUVASTATIN CALCIUM
     Indication: Product used for unknown indication
  6. OXYMETAZOLIN POW HCL [Concomitant]
     Indication: Product used for unknown indication
  7. QVAR AER 80MCG [Concomitant]
     Indication: Product used for unknown indication
  8. VITAMIN B-1 TAB 100MG [Concomitant]
     Indication: Product used for unknown indication
  9. FLUCONAZOLE TAB 150MG [Concomitant]
     Indication: Product used for unknown indication
  10. NASACORT ALR SPR 55MCG/AC [Concomitant]
     Indication: Product used for unknown indication
  11. TERBINAFINE TAB 250MG [Concomitant]
     Indication: Product used for unknown indication
  12. VITAMIN C TAB 500MG [Concomitant]
     Indication: Product used for unknown indication
  13. VITAMIN B100 TAB COMPLEX [Concomitant]
     Indication: Product used for unknown indication
  14. MELATONIN CAP 5MG [Concomitant]
     Indication: Product used for unknown indication
  15. GABAPENTIN CAP 100MG [Concomitant]
     Indication: Product used for unknown indication
  16. XIIDRA DRO 5% [Concomitant]
     Indication: Product used for unknown indication
  17. MONTELUKAST TAB 10 MG [Concomitant]
     Indication: Product used for unknown indication
  18. LEVOTHYROXIN TAB 25MCG [Concomitant]
     Indication: Product used for unknown indication
  19. METAMUCIL POW 58.12% [Concomitant]
     Indication: Product used for unknown indication
  20. VITAMIN B 6 TAB 50MG [Concomitant]
     Indication: Product used for unknown indication
  21. VALERIAN RT CAP 500MG [Concomitant]
     Indication: Product used for unknown indication
  22. BIOTIN POW [Concomitant]
     Indication: Product used for unknown indication
  23. VITAMIN E [Concomitant]
     Active Substance: .ALPHA.-TOCOPHEROL
     Indication: Product used for unknown indication
  24. PROAIR RESPICLICK [Concomitant]
     Active Substance: ALBUTEROL SULFATE
     Indication: Product used for unknown indication
  25. LOVAZA CAP 1GM [Concomitant]
     Indication: Product used for unknown indication
  26. PREMARIN TAB 0.625MG [Concomitant]
     Indication: Product used for unknown indication
  27. RANITIDINE TAB 300MG [Concomitant]
     Indication: Product used for unknown indication
  28. TELMISARTAN TAB 80MG [Concomitant]
     Indication: Product used for unknown indication
  29. FLUOCINONIDE OIN 0.05% [Concomitant]
     Indication: Product used for unknown indication
  30. ASPIRIN CHW 81MG [Concomitant]
     Indication: Product used for unknown indication
  31. VITAMIN D3 CAP 5000UNIT [Concomitant]
     Indication: Product used for unknown indication
  32. TRULICITY INJ 1.5/0.5 [Concomitant]
     Indication: Product used for unknown indication
  33. ZOLPIDEM ER TAB 12.5MG [Concomitant]
     Indication: Product used for unknown indication
  34. VITAMIN K2 TAB 100MCG [Concomitant]
     Indication: Product used for unknown indication
  35. RISEDRONATE TAB 150MG [Concomitant]
     Indication: Product used for unknown indication
  36. BUPROPION [Concomitant]
     Active Substance: BUPROPION
     Indication: Product used for unknown indication
  37. CLOBETASOL OIN 0.05% [Concomitant]
     Indication: Product used for unknown indication
  38. ACETAMINOPHN TAB 500MG [Concomitant]
     Indication: Product used for unknown indication
  39. METHOCARBAM TAB 500MG [Concomitant]
     Indication: Product used for unknown indication
  40. ZYRTEC ALLGY TAB 10MG [Concomitant]
     Indication: Product used for unknown indication
  41. MELOXICAM [Concomitant]
     Active Substance: MELOXICAM
     Indication: Product used for unknown indication

REACTIONS (4)
  - Loss of personal independence in daily activities [Unknown]
  - Pain [Unknown]
  - Psoriasis [Unknown]
  - Pain [Unknown]

NARRATIVE: CASE EVENT DATE: 20220511
